FAERS Safety Report 5206160-7 (Version None)
Quarter: 2006Q4

REPORT INFORMATION
  Report Type: 
  Country: None (occurrence: None)
  Receive Date: 20061026
  Receipt Date: 20060920
  Transmission Date: 20070319
  Serious: No
  Sender: FDA-Public Use
  Company Number: 2006114641

PATIENT

DRUGS (1)
  1. LYRICA [Suspect]

REACTIONS (2)
  - BALANCE DISORDER [None]
  - DIZZINESS [None]
